FAERS Safety Report 9038494 (Version 1)
Quarter: 2013Q1

REPORT INFORMATION
  Report Type: Report from Study
  Country: US (occurrence: US)
  Receive Date: 20130129
  Receipt Date: 20130129
  Transmission Date: 20140127
  Serious: Yes (Hospitalization)
  Sender: FDA-Public Use
  Company Number: US-ABBOTT-12P-163-0935046-00

PATIENT
  Age: 53 Year
  Sex: Female
  Weight: 64.47 kg

DRUGS (2)
  1. HUMIRA 40 MG/0.8 ML PEN [Suspect]
     Indication: CROHN^S DISEASE
     Dates: start: 2010, end: 201110
  2. METHOTREXATE [Suspect]
     Indication: CROHN^S DISEASE
     Dates: start: 201205

REACTIONS (2)
  - Ileostomy [Recovered/Resolved]
  - Ileostomy closure [Recovering/Resolving]
